FAERS Safety Report 5026838-8 (Version None)
Quarter: 2006Q2

REPORT INFORMATION
  Report Type: 
  Country: None (occurrence: None)
  Receive Date: 20060609
  Receipt Date: 20060528
  Transmission Date: 20061013
  Serious: Yes (Death, Other)
  Sender: FDA-Public Use
  Company Number: 2006EU001673

PATIENT
  Age: 63 Year
  Sex: Male

DRUGS (4)
  1. PROGRAF [Suspect]
     Indication: LUNG TRANSPLANT
     Dosage: UNKNOWN/D
  2. PREDNISONE [Suspect]
     Indication: LUNG TRANSPLANT
     Dosage: UNKNOWN/D, ORAL
     Route: 048
  3. MYCOPHENOLATE MOFETIL [Suspect]
     Indication: LUNG TRANSPLANT
     Dosage: 0.5 G, BID
  4. TRIMETOPRIM + SULFAMETOXAZOL (SULFAMETHOXAZOLE, TRIMETHOPRIM) [Concomitant]

REACTIONS (2)
  - LUNG TRANSPLANT REJECTION [None]
  - LYMPHOPROLIFERATIVE DISORDER [None]
